FAERS Safety Report 11179433 (Version 4)
Quarter: 2015Q3

REPORT INFORMATION
  Report Type: Spontaneous
  Country: JP (occurrence: JP)
  Receive Date: 20150611
  Receipt Date: 20150710
  Transmission Date: 20151125
  Serious: Yes (Death, Other)
  Sender: FDA-Public Use
  Company Number: PHJP2015JP009345

PATIENT
  Sex: Male

DRUGS (3)
  1. VOLTAREN SUP [Suspect]
     Active Substance: DICLOFENAC SODIUM
     Indication: PROCEDURAL PAIN
     Dosage: 25 MG, QD
     Route: 054
     Dates: start: 20141216
  2. NICARDIPINE [Suspect]
     Active Substance: NICARDIPINE
     Indication: PRODUCT USED FOR UNKNOWN INDICATION
     Dosage: UNK
     Route: 065
  3. MICARDIS [Suspect]
     Active Substance: TELMISARTAN
     Indication: PRODUCT USED FOR UNKNOWN INDICATION
     Dosage: UNK
     Route: 048

REACTIONS (6)
  - Blood pressure decreased [Recovered/Resolved]
  - General physical health deterioration [Unknown]
  - Cardiac death [Fatal]
  - Vomiting [Unknown]
  - Shock [Recovered/Resolved]
  - Poverty of speech [Unknown]

NARRATIVE: CASE EVENT DATE: 20141216
